FAERS Safety Report 10171645 (Version 2)
Quarter: 2014Q2

REPORT INFORMATION
  Report Type: Report from Study
  Country: FR (occurrence: FR)
  Receive Date: 20140514
  Receipt Date: 20140514
  Transmission Date: 20141212
  Serious: Yes (Life-Threatening)
  Sender: FDA-Public Use
  Company Number: FR-ROCHE-1387274

PATIENT
  Age: 48 Year
  Sex: Male
  Weight: 81.9 kg

DRUGS (7)
  1. VEMURAFENIB [Suspect]
     Indication: METASTATIC MALIGNANT MELANOMA
     Dosage: LAST DOSE PRIOR TO EVENT: 04/SEP/2013
     Route: 048
     Dates: start: 20130808, end: 20130905
  2. VEMURAFENIB [Suspect]
     Dosage: DOSE REDUCED.
     Route: 048
     Dates: start: 20130910
  3. TIORFAN [Concomitant]
     Indication: DIARRHOEA
     Route: 048
     Dates: start: 20130822, end: 20131031
  4. DEXERYL (FRANCE) [Concomitant]
     Indication: ERYTHEMA
     Route: 061
     Dates: start: 20130822, end: 20131002
  5. KETODERM [Concomitant]
     Indication: SEBORRHOEIC DERMATITIS
     Route: 061
     Dates: start: 20130822, end: 20131002
  6. COBIMETINIB [Suspect]
     Indication: METASTATIC MALIGNANT MELANOMA
     Dosage: LAST DOSE PRIOR TO EVENT: 28/AUG/2013
     Route: 048
     Dates: start: 20130808, end: 20130905
  7. COBIMETINIB [Suspect]
     Dosage: DOSE REDUCED.
     Route: 048
     Dates: start: 20130910

REACTIONS (1)
  - Lipase increased [Recovered/Resolved]
